FAERS Safety Report 6081028-5 (Version None)
Quarter: 2009Q1

REPORT INFORMATION
  Report Type: 
  Country: None (occurrence: None)
  Receive Date: 20090217
  Receipt Date: 20090209
  Transmission Date: 20090719
  Serious: Yes (Other)
  Sender: FDA-Public Use
  Company Number: PHHY2009MX04682

PATIENT
  Age: 70 Year
  Sex: Female

DRUGS (1)
  1. DIOVAN HCT [Suspect]
     Indication: HYPERTENSION
     Dosage: 80/2.5 MG PER DAY
     Route: 048
     Dates: start: 20050601

REACTIONS (3)
  - CAROTID ARTERY DISEASE [None]
  - HYPERTENSION [None]
  - SURGERY [None]
